FAERS Safety Report 6015501-2 (Version None)
Quarter: 2008Q4

REPORT INFORMATION
  Report Type: 
  Country: None (occurrence: None)
  Receive Date: 20081219
  Receipt Date: 20081219
  Transmission Date: 20090506
  Serious: No
  Sender: FDA-Public Use
  Company Number: None

PATIENT
  Age: 65 Year
  Sex: Male

DRUGS (1)
  1. FOSPHENYTOIN [Suspect]
     Dates: start: 20080708, end: 20080708

REACTIONS (2)
  - EOSINOPHILIA [None]
  - RENAL FAILURE ACUTE [None]
